FAERS Safety Report 23183699 (Version 1)
Quarter: 2023Q4

REPORT INFORMATION
  Report Type: Spontaneous
  Country: None (occurrence: FR)
  Receive Date: 20231114
  Receipt Date: 20231114
  Transmission Date: 20240110
  Serious: Yes (Hospitalization)
  Sender: FDA-Public Use
  Company Number: FR-B.Braun Medical Inc.-2148267

PATIENT
  Age: 94 Year
  Sex: Male

DRUGS (7)
  1. ACETAMINOPHEN [Suspect]
     Active Substance: ACETAMINOPHEN
     Route: 048
  2. CYAMEMAZINE [Suspect]
     Active Substance: CYAMEMAZINE
  3. DAFALGAN [Suspect]
     Active Substance: ACETAMINOPHEN
  4. LORAZEPAM [Suspect]
     Active Substance: LORAZEPAM
  5. FUROSEMIDE [Suspect]
     Active Substance: FUROSEMIDE
  6. CODEINE [Suspect]
     Active Substance: CODEINE
  7. POTASSIUM CHLORIDE [Suspect]
     Active Substance: POTASSIUM CHLORIDE

REACTIONS (4)
  - Off label use [None]
  - Product administration error [None]
  - Somnolence [None]
  - Coma [None]
